FAERS Safety Report 4421131-6 (Version None)
Quarter: 2004Q3

REPORT INFORMATION
  Report Type: 
  Country: None (occurrence: None)
  Receive Date: 20040804
  Receipt Date: 20040721
  Transmission Date: 20050211
  Serious: Yes (Hospitalization)
  Sender: FDA-Public Use
  Company Number: US-JNJFOC-20040705942

PATIENT
  Sex: Male

DRUGS (1)
  1. PANCREASE (PANCRELIPASE) [Suspect]

REACTIONS (1)
  - HOSPITALISATION [None]
